FAERS Safety Report 11258952 (Version 1)
Quarter: 2015Q3

REPORT INFORMATION
  Report Type: Spontaneous
  Country: US (occurrence: None)
  Receive Date: 20150709
  Receipt Date: 20150709
  Transmission Date: 20151125
  Serious: Yes (Other)
  Sender: FDA-Public Use
  Company Number: None

PATIENT
  Sex: Female

DRUGS (2)
  1. LEXAPRO [Suspect]
     Active Substance: ESCITALOPRAM OXALATE
     Indication: SELF INJURIOUS BEHAVIOUR
     Dosage: 1.5 TABS, QD, PO
     Route: 048
     Dates: start: 2011
  2. LEXAPRO [Suspect]
     Active Substance: ESCITALOPRAM OXALATE
     Indication: MITOCHONDRIAL DNA MUTATION
     Dosage: 1.5 TABS, QD, PO
     Route: 048
     Dates: start: 2011

REACTIONS (2)
  - Drug ineffective [None]
  - Product substitution issue [None]

NARRATIVE: CASE EVENT DATE: 2012
